FAERS Safety Report 25393798 (Version 1)
Quarter: 2025Q2

REPORT INFORMATION
  Report Type: Spontaneous
  Country: US (occurrence: US)
  Receive Date: 20250604
  Receipt Date: 20250604
  Transmission Date: 20250716
  Serious: Yes (Hospitalization, Other)
  Sender: NOVO NORDISK
  Company Number: US-NOVOPROD-1445429

PATIENT
  Age: 70 Year
  Sex: Male

DRUGS (2)
  1. TRESIBA [Suspect]
     Active Substance: INSULIN DEGLUDEC
     Route: 058
  2. TRESIBA [Suspect]
     Active Substance: INSULIN DEGLUDEC
     Indication: Type 2 diabetes mellitus
     Dosage: 15 IU, QD
     Route: 058
     Dates: start: 2020

REACTIONS (7)
  - Localised infection [Recovered/Resolved]
  - Osteomyelitis [Recovered/Resolved]
  - Sepsis [Recovered/Resolved]
  - Bladder catheterisation [Unknown]
  - Memory impairment [Not Recovered/Not Resolved]
  - Depressed mood [Recovered/Resolved]
  - Abnormal loss of weight [Unknown]

NARRATIVE: CASE EVENT DATE: 20200101
